FAERS Safety Report 16976882 (Version 1)
Quarter: 2019Q4

REPORT INFORMATION
  Report Type: Spontaneous
  Country: US (occurrence: US)
  Receive Date: 20190914
  Receipt Date: 20190914
  Transmission Date: 20200122
  Serious: No
  Sender: FDA-Public Use
  Company Number: None

PATIENT
  Age: 65 Year
  Sex: Female

DRUGS (1)
  1. ENBREL [Suspect]
     Active Substance: ETANERCEPT
     Route: 058
     Dates: start: 201904

REACTIONS (5)
  - Needle issue [None]
  - Injection site discolouration [None]
  - Injection site warmth [None]
  - Injection site pruritus [None]
  - Injection site extravasation [None]

NARRATIVE: CASE EVENT DATE: 20190914
